FAERS Safety Report 13112132 (Version 1)
Quarter: 2017Q1

REPORT INFORMATION
  Report Type: Spontaneous
  Country: US (occurrence: US)
  Receive Date: 20170113
  Receipt Date: 20170113
  Transmission Date: 20170428
  Serious: Yes (Hospitalization)
  Sender: FDA-Public Use
  Company Number: US-ASTRAZENECA-2017SE02183

PATIENT
  Age: 752 Month
  Sex: Female
  Weight: 54.4 kg

DRUGS (14)
  1. TOPROL XL [Suspect]
     Active Substance: METOPROLOL SUCCINATE
     Indication: PALPITATIONS
     Route: 048
     Dates: start: 2006
  2. RED YEAST RICE [Concomitant]
     Active Substance: DIETARY SUPPLEMENT
     Indication: ILL-DEFINED DISORDER
     Dosage: 600.0MG AS REQUIRED
     Route: 048
     Dates: start: 2015
  3. TOPROL XL [Suspect]
     Active Substance: METOPROLOL SUCCINATE
     Indication: TACHYCARDIA
     Route: 048
     Dates: start: 2006
  4. ASPIRIN. [Concomitant]
     Active Substance: ASPIRIN
     Indication: PLATELET DISORDER
     Route: 048
     Dates: start: 2014
  5. TOPROL XL [Suspect]
     Active Substance: METOPROLOL SUCCINATE
     Indication: PALPITATIONS
     Route: 048
     Dates: end: 2006
  6. NIASPAN [Concomitant]
     Active Substance: NIACIN
     Indication: BLOOD CHOLESTEROL INCREASED
     Route: 048
     Dates: start: 2010
  7. PREMARIN [Concomitant]
     Active Substance: ESTROGENS, CONJUGATED
     Indication: VULVOVAGINAL DRYNESS
     Route: 067
     Dates: start: 2011
  8. MULTIVITAMIN [Concomitant]
     Active Substance: VITAMINS
     Indication: FATIGUE
     Dosage: DAILY
     Route: 048
     Dates: end: 201612
  9. VITAMIN C [Concomitant]
     Active Substance: ASCORBIC ACID
     Indication: SUPPLEMENTATION THERAPY
     Route: 048
  10. COUMADIN [Concomitant]
     Active Substance: WARFARIN SODIUM
     Indication: VENTRICULAR SEPTAL DEFECT
     Route: 048
     Dates: start: 200602
  11. COUMADIN [Concomitant]
     Active Substance: WARFARIN SODIUM
     Indication: VENTRICULAR SEPTAL DEFECT
     Route: 048
     Dates: start: 200602
  12. UBIQUINOL [Concomitant]
     Active Substance: UBIQUINOL
     Indication: PROPHYLAXIS
     Route: 048
     Dates: start: 2016
  13. TOPROL XL [Suspect]
     Active Substance: METOPROLOL SUCCINATE
     Indication: TACHYCARDIA
     Route: 048
     Dates: end: 2006
  14. VITAMIN D [Concomitant]
     Active Substance: CHOLECALCIFEROL
     Indication: VITAMIN D DEFICIENCY
     Route: 048
     Dates: start: 2009

REACTIONS (8)
  - Tachycardia [Unknown]
  - Supraventricular tachycardia [Unknown]
  - Chest discomfort [Unknown]
  - Anxiety [Unknown]
  - Stress [Unknown]
  - Vitamin D decreased [Unknown]
  - Palpitations [Unknown]
  - Fatigue [Unknown]

NARRATIVE: CASE EVENT DATE: 200602
